FAERS Safety Report 10345122 (Version 1)
Quarter: 2014Q3

REPORT INFORMATION
  Report Type: Spontaneous
  Country: US (occurrence: None)
  Receive Date: 20140725
  Receipt Date: 20140725
  Transmission Date: 20150326
  Serious: Yes (Hospitalization)
  Sender: FDA-Public Use
  Company Number: None

PATIENT
  Age: 66 Year
  Sex: Male
  Weight: 108.2 kg

DRUGS (2)
  1. BEVACIZUMAB [Suspect]
     Active Substance: BEVACIZUMAB
     Dates: start: 20140630
  2. ABRAXANE [Suspect]
     Active Substance: PACLITAXEL
     Dates: start: 20140225

REACTIONS (3)
  - Dizziness [None]
  - Dehydration [None]
  - Blood pressure decreased [None]

NARRATIVE: CASE EVENT DATE: 20140709
